FAERS Safety Report 15187897 (Version 2)
Quarter: 2018Q3

REPORT INFORMATION
  Report Type: Spontaneous
  Country: US (occurrence: US)
  Receive Date: 20180724
  Receipt Date: 20180807
  Transmission Date: 20181010
  Serious: No
  Sender: FDA-Public Use
  Company Number: US-BAUSCH-BL-2018-001049

PATIENT
  Age: 61 Year
  Sex: Female
  Weight: 56.75 kg

DRUGS (1)
  1. JUBLIA [Suspect]
     Active Substance: EFINACONAZOLE
     Indication: ONYCHOMYCOSIS
     Dosage: USED FOR ABOUT ONE YEAR
     Route: 061
     Dates: start: 2016, end: 201710

REACTIONS (2)
  - Drug ineffective [Recovered/Resolved]
  - Product use issue [Recovered/Resolved]
